FAERS Safety Report 25749600 (Version 4)
Quarter: 2025Q4

REPORT INFORMATION
  Report Type: Spontaneous
  Country: EU (occurrence: EU)
  Receive Date: 20250902
  Receipt Date: 20251028
  Transmission Date: 20260118
  Serious: Yes (Hospitalization, Other)
  Sender: BRISTOL-MYERS SQUIBB COMPANY
  Company Number: EU-BRISTOL-MYERS SQUIBB COMPANY-2025-119712

PATIENT
  Age: 63 Year
  Sex: Female

DRUGS (5)
  1. DASATINIB [Suspect]
     Active Substance: DASATINIB
     Indication: Philadelphia positive acute lymphocytic leukaemia
  2. DASATINIB [Suspect]
     Active Substance: DASATINIB
     Dosage: SHE STARTED BACK ON THERAPY
  3. BLINATUMOMAB [Suspect]
     Active Substance: BLINATUMOMAB
     Indication: Philadelphia positive acute lymphocytic leukaemia
  4. BLINATUMOMAB [Suspect]
     Active Substance: BLINATUMOMAB
  5. BLINATUMOMAB [Suspect]
     Active Substance: BLINATUMOMAB

REACTIONS (2)
  - Colitis [Recovered/Resolved]
  - Large intestine perforation [Recovered/Resolved]
